FAERS Safety Report 11732173 (Version 2)
Quarter: 2016Q1

REPORT INFORMATION
  Report Type: Spontaneous
  Country: US (occurrence: US)
  Receive Date: 20151113
  Receipt Date: 20160310
  Transmission Date: 20160525
  Serious: Yes (Other)
  Sender: FDA-Public Use
  Company Number: US-009507513-1511USA006877

PATIENT
  Age: 17 Year
  Sex: Female
  Weight: 64.85 kg

DRUGS (3)
  1. NEXPLANON [Suspect]
     Active Substance: ETONOGESTREL
     Indication: CONTRACEPTION
     Dosage: EVERY 3 YEARS, IN LEFT ARM
     Route: 059
     Dates: start: 20150114, end: 20151218
  2. AMLODIPINE [Concomitant]
     Active Substance: AMLODIPINE BESYLATE
  3. ABILIFY [Concomitant]
     Active Substance: ARIPIPRAZOLE

REACTIONS (4)
  - Menstruation irregular [Unknown]
  - Muscle spasms [Unknown]
  - Menorrhagia [Unknown]
  - Menometrorrhagia [Recovered/Resolved]

NARRATIVE: CASE EVENT DATE: 201502
